FAERS Safety Report 5404747-X (Version None)
Quarter: 2007Q3

REPORT INFORMATION
  Report Type: 
  Country: None (occurrence: None)
  Receive Date: 20070801
  Receipt Date: 20070726
  Transmission Date: 20080115
  Serious: Yes (Other)
  Sender: FDA-Public Use
  Company Number: E2020-00389-SPO-JP

PATIENT
  Age: 83 Year
  Sex: Female
  Weight: 36 kg

DRUGS (5)
  1. ARICEPT [Suspect]
     Indication: DEMENTIA ALZHEIMER'S TYPE
     Dosage: 3 MG, 1 IN 1 D, ORAL; 5 MG, 1 IN 1 D, ORAL
     Route: 048
     Dates: start: 20060607, end: 20060620
  2. ARICEPT [Suspect]
     Indication: DEMENTIA ALZHEIMER'S TYPE
     Dosage: 3 MG, 1 IN 1 D, ORAL; 5 MG, 1 IN 1 D, ORAL
     Route: 048
     Dates: start: 20060621, end: 20060818
  3. SELBEX (TEPRENONE) [Concomitant]
  4. RANTUDIL (ACEMETACIN) [Concomitant]
  5. IDOMETHINE (INDOMETHINE) [Concomitant]

REACTIONS (7)
  - ADAMS-STOKES SYNDROME [None]
  - ARRHYTHMIA [None]
  - ATRIOVENTRICULAR BLOCK SECOND DEGREE [None]
  - DAYDREAMING [None]
  - MEMORY IMPAIRMENT [None]
  - SINUS TACHYCARDIA [None]
  - SYNCOPE [None]
